FAERS Safety Report 6262059-9 (Version None)
Quarter: 2009Q3

REPORT INFORMATION
  Report Type: 
  Country: None (occurrence: None)
  Receive Date: 20090709
  Receipt Date: 20090629
  Transmission Date: 20100115
  Serious: Yes (Other)
  Sender: FDA-Public Use
  Company Number: JP-BAXTER-2009BH010482

PATIENT
  Age: 42 Year
  Sex: Female

DRUGS (5)
  1. ENDOXAN BAXTER [Suspect]
     Indication: BONE MARROW CONDITIONING REGIMEN
     Route: 065
     Dates: start: 20080301
  2. PREDNISOLONE [Suspect]
     Indication: CHRONIC GRAFT VERSUS HOST DISEASE
     Route: 065
     Dates: start: 20080101
  3. BUSULFAN [Concomitant]
     Indication: BONE MARROW CONDITIONING REGIMEN
     Route: 065
     Dates: start: 20080301
  4. CYCLOSPORINE [Concomitant]
     Indication: CHRONIC GRAFT VERSUS HOST DISEASE
     Route: 065
     Dates: start: 20080301
  5. METHOTREXATE GENERIC [Concomitant]
     Indication: CHRONIC GRAFT VERSUS HOST DISEASE
     Route: 065
     Dates: start: 20080301

REACTIONS (1)
  - INTRACRANIAL VENOUS SINUS THROMBOSIS [None]
